FAERS Safety Report 9484608 (Version 1)
Quarter: 2013Q3

REPORT INFORMATION
  Report Type: Spontaneous
  Country: US (occurrence: US)
  Receive Date: 20130828
  Receipt Date: 20130828
  Transmission Date: 20140515
  Serious: No
  Sender: FDA-Public Use
  Company Number: US-B.I. PHARMACEUTICALS,INC./RIDGEFIELD-2013-BI-26145BP

PATIENT
  Age: 55 Year
  Sex: Female
  Weight: 73 kg

DRUGS (7)
  1. SPIRIVA [Suspect]
     Indication: CHRONIC OBSTRUCTIVE PULMONARY DISEASE
     Dosage: 18 MCG
     Route: 055
     Dates: start: 2012, end: 201307
  2. DILTIAZEM XR [Concomitant]
     Indication: CORONARY ARTERY DISEASE
     Dosage: 240 MG
     Route: 048
  3. PLAVIX [Concomitant]
     Indication: CORONARY ARTERY DISEASE
     Dosage: 75 MG
     Route: 048
  4. PROZAC [Concomitant]
     Indication: DEPRESSION
     Dosage: 40 MG
     Route: 048
  5. PROAIR [Concomitant]
     Indication: ASTHMA
     Route: 055
  6. SYNTHROID [Concomitant]
     Indication: HYPOTHYROIDISM
     Dosage: 200 MCG
     Route: 048
  7. OMEPRAZOLE [Concomitant]
     Indication: GASTROOESOPHAGEAL REFLUX DISEASE
     Dosage: 20 MG
     Route: 048

REACTIONS (1)
  - Dyspnoea [Not Recovered/Not Resolved]
